FAERS Safety Report 21658748 (Version 1)
Quarter: 2022Q4

REPORT INFORMATION
  Report Type: Spontaneous
  Country: GR (occurrence: GR)
  Receive Date: 20221129
  Receipt Date: 20221129
  Transmission Date: 20230113
  Serious: Yes (Death, Hospitalization, Other)
  Sender: FDA-Public Use
  Company Number: GR-SA-2022SA485326

PATIENT
  Age: 54 Year
  Sex: Male

DRUGS (2)
  1. ENOXAPARIN SODIUM [Suspect]
     Active Substance: ENOXAPARIN SODIUM
     Indication: Atrial fibrillation
     Dosage: THERAPEUTIC DOSE
  2. AMIODARONE [Concomitant]
     Active Substance: AMIODARONE
     Indication: Atrial fibrillation

REACTIONS (5)
  - Retroperitoneal haematoma [Fatal]
  - Abdominal pain [Fatal]
  - Haemodynamic instability [Fatal]
  - Depressed level of consciousness [Fatal]
  - Anuria [Fatal]
